FAERS Safety Report 11240849 (Version 1)
Quarter: 2015Q3

REPORT INFORMATION
  Report Type: Spontaneous
  Country: US (occurrence: US)
  Receive Date: 20150706
  Receipt Date: 20150706
  Transmission Date: 20151125
  Serious: Yes (Death, Hospitalization)
  Sender: FDA-Public Use
  Company Number: US-BAXTER-2015BAX035048

PATIENT
  Age: 51 Year
  Sex: Female

DRUGS (2)
  1. 0.9% SODIUM CHLORIDE INJECTION [Suspect]
     Active Substance: SODIUM CHLORIDE
     Indication: CHRONIC KIDNEY DISEASE
     Route: 010
     Dates: start: 20140506, end: 20150601
  2. 0.9% SODIUM CHLORIDE INJECTION [Suspect]
     Active Substance: SODIUM CHLORIDE
     Indication: HAEMODIALYSIS
     Route: 065
     Dates: start: 20090624, end: 20140321

REACTIONS (3)
  - Arteriovenous fistula site complication [Fatal]
  - Gangrene [Not Recovered/Not Resolved]
  - Arteriovenous fistula site haemorrhage [Fatal]

NARRATIVE: CASE EVENT DATE: 2015
